FAERS Safety Report 14769892 (Version 4)
Quarter: 2018Q3

REPORT INFORMATION
  Report Type: Spontaneous
  Country: JP (occurrence: JP)
  Receive Date: 20180417
  Receipt Date: 20180705
  Transmission Date: 20181010
  Serious: Yes (Disabling, Other)
  Sender: FDA-Public Use
  Company Number: JP-BAYER-2018-069300

PATIENT
  Age: 79 Year
  Sex: Male
  Weight: 62.5 kg

DRUGS (9)
  1. GANATON [Concomitant]
     Active Substance: ITOPRIDE
     Dosage: DAILY DOSE 150 MG
     Route: 048
     Dates: start: 2010
  2. MAGNESIUM OXIDE. [Concomitant]
     Active Substance: MAGNESIUM OXIDE
     Dosage: DAILY DOSE 0.6G
     Route: 048
     Dates: start: 2010
  3. ACETYLOL [Concomitant]
     Indication: DRUG TOXICITY PROPHYLAXIS
     Dosage: UNK
     Dates: start: 20170720, end: 20180507
  4. FAMOTIDINE. [Concomitant]
     Active Substance: FAMOTIDINE
     Dosage: DAILY DOSE 20 MG
     Route: 048
     Dates: start: 2010
  5. STIVARGA [Suspect]
     Active Substance: REGORAFENIB
     Indication: GASTROINTESTINAL STROMAL TUMOUR
     Dosage: 40 MG, QD, 3 WEEKS ON 1 WEEK OFF
     Route: 048
     Dates: start: 20170720, end: 20180407
  6. MEVALOTIN [Concomitant]
     Active Substance: PRAVASTATIN SODIUM
     Dosage: DAILY DOSE 10 MG
     Route: 048
     Dates: start: 2010
  7. MIYA?BM [Concomitant]
     Active Substance: CLOSTRIDIUM BUTYRICUM SPORES STRAIN M-55
     Dosage: DAILY DOSE 3 MG
     Route: 048
     Dates: start: 2010
  8. STIVARGA [Suspect]
     Active Substance: REGORAFENIB
     Indication: GASTROINTESTINAL STROMAL TUMOUR
     Dosage: DAILY DOSE 80MG, QOD
     Route: 048
     Dates: start: 20180408, end: 20180408
  9. AZILSARTAN [Concomitant]
     Active Substance: AZILSARTAN KAMEDOXOMIL
     Indication: CARDIOVASCULAR EVENT PROPHYLAXIS
     Dosage: DAILY DOSE 10 MG
     Route: 048
     Dates: start: 20170818

REACTIONS (7)
  - Ulcerative keratitis [Not Recovered/Not Resolved]
  - Gastrointestinal stromal tumour [None]
  - Lacrimation increased [Recovered/Resolved with Sequelae]
  - Lacrimation increased [Not Recovered/Not Resolved]
  - Corneal perforation [Recovered/Resolved with Sequelae]
  - Eye pain [Recovered/Resolved with Sequelae]
  - Abnormal sensation in eye [Not Recovered/Not Resolved]

NARRATIVE: CASE EVENT DATE: 20180210
